FAERS Safety Report 25307518 (Version 3)
Quarter: 2025Q2

REPORT INFORMATION
  Report Type: Spontaneous
  Country: NL (occurrence: NL)
  Receive Date: 20250513
  Receipt Date: 20250626
  Transmission Date: 20250716
  Serious: Yes (Hospitalization)
  Sender: ROCHE
  Company Number: None

PATIENT
  Age: 76 Year
  Sex: Male
  Weight: 105 kg

DRUGS (2)
  1. OBINUTUZUMAB [Suspect]
     Active Substance: OBINUTUZUMAB
     Indication: Chronic lymphocytic leukaemia
     Route: 065
     Dates: start: 20240422, end: 20250424
  2. CHLORAMBUCIL [Concomitant]
     Active Substance: CHLORAMBUCIL
     Dates: start: 20250422

REACTIONS (1)
  - Supraventricular tachycardia [Recovered/Resolved]
